FAERS Safety Report 9532717 (Version 2)
Quarter: 2013Q3

REPORT INFORMATION
  Report Type: Spontaneous
  Country: US (occurrence: US)
  Receive Date: 20130918
  Receipt Date: 20130918
  Transmission Date: 20140515
  Serious: Yes (Other)
  Sender: FDA-Public Use
  Company Number: US-NAPPMUNDI-USA-2011-0074462

PATIENT
  Age: 50 Year
  Sex: Female
  Weight: 72 kg

DRUGS (3)
  1. BUTRANS [Suspect]
     Indication: PAIN
     Dosage: 5 MCG, Q1H
     Route: 062
     Dates: start: 201104
  2. BUTRANS [Suspect]
     Dosage: 5 MCG, Q1H
     Route: 062
     Dates: start: 20110606
  3. VOLTAREN EMULGEL [Concomitant]
     Indication: PAIN
     Dosage: 1 DF, TID
     Route: 062

REACTIONS (10)
  - Application site rash [Unknown]
  - Nausea [Recovered/Resolved]
  - Dizziness [Recovered/Resolved]
  - Device leakage [Unknown]
  - Application site odour [Unknown]
  - Application site pustules [Unknown]
  - Therapeutic response increased [Unknown]
  - Feeling abnormal [Unknown]
  - Product adhesion issue [Unknown]
  - Vomiting [Recovered/Resolved]
